FAERS Safety Report 10082929 (Version 1)
Quarter: 2014Q2

REPORT INFORMATION
  Report Type: Spontaneous
  Country: US (occurrence: US)
  Receive Date: 20140417
  Receipt Date: 20140417
  Transmission Date: 20141212
  Serious: No
  Sender: FDA-Public Use
  Company Number: US-009507513-1404USA006535

PATIENT
  Sex: Female

DRUGS (2)
  1. PROAIR (ALBUTEROL SULFATE) [Suspect]
     Dosage: UNK
  2. DULERA [Suspect]
     Dosage: UNK
     Dates: start: 20140409

REACTIONS (2)
  - Pruritus [Unknown]
  - Wrong drug administered [Unknown]
